FAERS Safety Report 23848646 (Version 1)
Quarter: 2024Q2

REPORT INFORMATION
  Report Type: Spontaneous
  Country: US (occurrence: US)
  Receive Date: 20240513
  Receipt Date: 20240513
  Transmission Date: 20240715
  Serious: No
  Sender: FDA-Public Use
  Company Number: US-PERRIGO-24US002753

PATIENT
  Sex: Female

DRUGS (3)
  1. MICONAZOLE 3 COMBINATION PACK [Suspect]
     Active Substance: MICONAZOLE NITRATE
     Indication: Urinary tract infection
     Dosage: 200 MG, SINGLE
     Route: 067
     Dates: start: 20240317, end: 20240317
  2. MICONAZOLE 3 COMBINATION PACK [Suspect]
     Active Substance: MICONAZOLE NITRATE
     Indication: Vulvovaginal mycotic infection
  3. MICONAZOLE 3 COMBINATION PACK [Suspect]
     Active Substance: MICONAZOLE NITRATE
     Indication: Vulval disorder
     Dosage: UNKNOWN, SINGLE
     Route: 061
     Dates: start: 20240317, end: 20240317

REACTIONS (2)
  - Vaginal discharge [Unknown]
  - Off label use [Unknown]

NARRATIVE: CASE EVENT DATE: 20240317
